FAERS Safety Report 4910412-5 (Version None)
Quarter: 2006Q1

REPORT INFORMATION
  Report Type: 
  Country: None (occurrence: None)
  Receive Date: 20060206
  Receipt Date: 20060127
  Transmission Date: 20060701
  Serious: Yes (Hospitalization)
  Sender: FDA-Public Use
  Company Number: 200610472BCC

PATIENT
  Age: 52 Year
  Sex: Female

DRUGS (13)
  1. E.S. BAYER BACK + BODY PAIN [Suspect]
     Dosage: 2000 MG, Q4HR, ORAL
     Route: 048
     Dates: start: 20060115
  2. AVELOX [Suspect]
     Indication: INFLUENZA
     Dates: start: 20060124
  3. BACLOFEN [Concomitant]
  4. METHADONE [Concomitant]
  5. NEXIUM [Concomitant]
  6. CELEXA [Concomitant]
  7. SPIRIVA [Concomitant]
  8. ZELNORM [Concomitant]
  9. NASACORT [Concomitant]
  10. PHENERGAN [Concomitant]
  11. LASIX [Concomitant]
  12. ELAVIL [Concomitant]
  13. KLONOPIN [Concomitant]

REACTIONS (9)
  - ASTHENIA [None]
  - BLOOD PRESSURE INCREASED [None]
  - ERYTHEMA [None]
  - FEELING COLD [None]
  - HOT FLUSH [None]
  - INFLUENZA [None]
  - IRRITABLE BOWEL SYNDROME [None]
  - SWELLING FACE [None]
  - TINNITUS [None]
